FAERS Safety Report 6394592-3 (Version None)
Quarter: 2009Q4

REPORT INFORMATION
  Report Type: 
  Country: None (occurrence: None)
  Receive Date: 20091009
  Receipt Date: 20090929
  Transmission Date: 20100525
  Serious: Yes (Other)
  Sender: FDA-Public Use
  Company Number: US-JNJFOC-20090908840

PATIENT
  Sex: Female
  Weight: 72.58 kg

DRUGS (3)
  1. REMICADE [Suspect]
     Route: 042
     Dates: start: 20090311, end: 20090702
  2. REMICADE [Suspect]
     Route: 042
     Dates: start: 20090311, end: 20090702
  3. REMICADE [Suspect]
     Indication: RHEUMATOID ARTHRITIS
     Route: 042
     Dates: start: 20090311, end: 20090702

REACTIONS (1)
  - TONSILLECTOMY [None]
